FAERS Safety Report 9813949 (Version 1)
Quarter: 2014Q1

REPORT INFORMATION
  Report Type: Report from Study
  Country: BR (occurrence: BR)
  Receive Date: 20140113
  Receipt Date: 20140113
  Transmission Date: 20141002
  Serious: Yes (Hospitalization, Other)
  Sender: FDA-Public Use
  Company Number: PHHY2014BR001379

PATIENT
  Age: 91 Year
  Sex: Female

DRUGS (6)
  1. EXELON PATCH [Suspect]
     Indication: DEMENTIA ALZHEIMER^S TYPE
     Dosage: 13.3 MG, DAILY (EVERY NIGHT) (27MG/15CM2)
     Route: 062
     Dates: start: 201306
  2. QUETIAPINE FUMARATE [Concomitant]
     Dosage: UNK
     Dates: start: 2013
  3. QUETIAPINE FUMARATE [Concomitant]
     Dosage: DOSE INCREASED
  4. DIOVAN [Concomitant]
     Dosage: UNK
     Dates: start: 2013
  5. LEVOFLOXACIN [Concomitant]
     Dosage: UNK
     Dates: start: 2013
  6. PANTOPAZ [Concomitant]
     Dosage: UNK
     Dates: start: 2013

REACTIONS (8)
  - Urinary tract infection [Recovering/Resolving]
  - Multiple sclerosis [Recovering/Resolving]
  - Hypokinesia [Recovering/Resolving]
  - Abdominal pain upper [Recovering/Resolving]
  - Psychiatric symptom [Recovered/Resolved]
  - Negativism [Unknown]
  - Wrong technique in drug usage process [Recovering/Resolving]
  - Vomiting [Recovered/Resolved]
